FAERS Safety Report 17342186 (Version 1)
Quarter: 2020Q1

REPORT INFORMATION
  Report Type: Spontaneous
  Country: US (occurrence: US)
  Receive Date: 20200129
  Receipt Date: 20200129
  Transmission Date: 20200409
  Serious: No
  Sender: FDA-Public Use
  Company Number: US-ALLERGAN-1924510US

PATIENT
  Age: 55 Year
  Sex: Female

DRUGS (2)
  1. BOTOX COSMETIC [Suspect]
     Active Substance: ONABOTULINUMTOXINA
     Indication: SKIN WRINKLING
     Dosage: 20 UNITS, SINGLE
     Dates: start: 20190603, end: 20190603
  2. ARMODAFINIL. [Concomitant]
     Active Substance: ARMODAFINIL
     Dosage: UNK

REACTIONS (4)
  - Injection site pain [Unknown]
  - Injection site rash [Recovered/Resolved]
  - Injection site bruising [Not Recovered/Not Resolved]
  - Drug ineffective [Unknown]

NARRATIVE: CASE EVENT DATE: 20190603
